FAERS Safety Report 4525584-4 (Version None)
Quarter: 2004Q4

REPORT INFORMATION
  Report Type: 
  Country: None (occurrence: None)
  Receive Date: 20041116
  Receipt Date: 20040930
  Transmission Date: 20050328
  Serious: No
  Sender: FDA-Public Use
  Company Number: S04-USA-06453-01

PATIENT
  Age: 85 Year
  Sex: Female

DRUGS (12)
  1. NAMENDA [Suspect]
     Indication: DEMENTIA
     Dosage: 10 MG QD PO
     Route: 048
     Dates: start: 20040930
  2. NAMENDA [Suspect]
     Indication: DEMENTIA
     Dosage: 5 MG QD PO
     Route: 048
     Dates: start: 20040923, end: 20040929
  3. LEVOXYL [Concomitant]
  4. VIOXX [Concomitant]
  5. CALCIUM [Concomitant]
  6. ALTACE (RAMIPRIL) [Concomitant]
  7. TOPROL-XL [Concomitant]
  8. PREMARIN [Concomitant]
  9. NORVASC [Concomitant]
  10. PLAVIX [Concomitant]
  11. CELEXA [Concomitant]
  12. PRILOSEC [Concomitant]

REACTIONS (1)
  - DIARRHOEA [None]
